FAERS Safety Report 11291340 (Version 1)
Quarter: 2015Q3

REPORT INFORMATION
  Report Type: Spontaneous
  Country: US (occurrence: US)
  Receive Date: 20150722
  Receipt Date: 20150722
  Transmission Date: 20151125
  Serious: No
  Sender: FDA-Public Use
  Company Number: US-ASTRAZENECA-2015SE67580

PATIENT
  Age: 25322 Day
  Sex: Female
  Weight: 31.8 kg

DRUGS (6)
  1. TUDORZA PRESSAIR [Suspect]
     Active Substance: ACLIDINIUM BROMIDE
     Indication: BRONCHITIS
     Route: 055
  2. TUDORZA PRESSAIR [Suspect]
     Active Substance: ACLIDINIUM BROMIDE
     Indication: CHRONIC OBSTRUCTIVE PULMONARY DISEASE
     Route: 055
  3. LISINOPRIL. [Suspect]
     Active Substance: LISINOPRIL
     Indication: BLOOD PRESSURE ABNORMAL
     Route: 048
  4. ASPIRIN. [Concomitant]
     Active Substance: ASPIRIN
  5. MULTIVITAMINS [Concomitant]
     Active Substance: VITAMINS
     Dosage: DAILY
  6. IRON PILL [Concomitant]
     Active Substance: IRON
     Indication: BLOOD IRON DECREASED
     Dates: start: 2015

REACTIONS (5)
  - Gait disturbance [Unknown]
  - Weight decreased [Unknown]
  - Drug dose omission [Unknown]
  - Intentional product misuse [Unknown]
  - Product quality issue [Unknown]

NARRATIVE: CASE EVENT DATE: 20150708
